FAERS Safety Report 24730520 (Version 1)
Quarter: 2024Q4

REPORT INFORMATION
  Report Type: Spontaneous
  Country: FR (occurrence: None)
  Receive Date: 20241213
  Receipt Date: 20241213
  Transmission Date: 20250115
  Serious: Yes (Hospitalization)
  Sender: ORION
  Company Number: FR-Orion Corporation ORION PHARMA-TREX2024-0275

PATIENT
  Age: 48 Year
  Sex: Female

DRUGS (1)
  1. METHOTREXATE SODIUM [Suspect]
     Active Substance: METHOTREXATE SODIUM
     Indication: Ankylosing spondylitis
     Dosage: STRENGTH 10 MG. 2 DOSAGE FORM ADMINISTRATION OF 2 TABLETS ON 18 AND 20-SEP-2024 INSTEAD OF 1 TABLET
     Dates: start: 20240918, end: 20240920

REACTIONS (5)
  - Inappropriate schedule of product administration [Recovered/Resolved]
  - Extra dose administered [Recovered/Resolved]
  - Aphthous ulcer [Recovering/Resolving]
  - Throat irritation [Recovering/Resolving]
  - Product use in unapproved indication [Unknown]

NARRATIVE: CASE EVENT DATE: 20240918
